FAERS Safety Report 8432616-X (Version None)
Quarter: 2012Q2

REPORT INFORMATION
  Report Type: 
  Country: None (occurrence: None)
  Receive Date: 20120613
  Receipt Date: 20120601
  Transmission Date: 20120825
  Serious: Yes (Hospitalization, Other)
  Sender: FDA-Public Use
  Company Number: US-SANOFI-AVENTIS-2012SA039870

PATIENT
  Age: 68 Year
  Sex: Female

DRUGS (3)
  1. ALLEGRA-D 12 HOUR [Suspect]
  2. ALLEGRA-D 12 HOUR [Suspect]
  3. ALLEGRA [Suspect]

REACTIONS (5)
  - DRUG INEFFECTIVE [None]
  - BACK DISORDER [None]
  - HYPERSENSITIVITY [None]
  - MALAISE [None]
  - SINUS CONGESTION [None]
